FAERS Safety Report 6146884-0 (Version None)
Quarter: 2009Q2

REPORT INFORMATION
  Report Type: 
  Country: None (occurrence: None)
  Receive Date: 20090407
  Receipt Date: 20090403
  Transmission Date: 20091009
  Serious: Yes (Life-Threatening)
  Sender: FDA-Public Use
  Company Number: JP-SANOFI-SYNTHELABO-A01200810830

PATIENT
  Sex: Female
  Weight: 45.5 kg

DRUGS (12)
  1. BIOFERMIN [Concomitant]
  2. PARIET [Concomitant]
  3. DEPAS [Concomitant]
  4. GASMOTIN [Concomitant]
  5. MAGMITT [Concomitant]
  6. LOXONIN [Concomitant]
  7. WARFARIN SODIUM [Concomitant]
  8. CALCIUM LEVOFOLINATE [Concomitant]
  9. AVASTIN [Suspect]
     Indication: COLON CANCER METASTATIC
     Route: 041
     Dates: start: 20080806, end: 20080806
  10. ELPLAT [Suspect]
     Indication: COLON CANCER METASTATIC
     Dosage: UNK
     Route: 041
  11. DUROTEP [Concomitant]
  12. FLUOROURACIL [Suspect]
     Indication: COLON CANCER METASTATIC
     Dosage: UNK
     Route: 042

REACTIONS (1)
  - GASTROINTESTINAL PERFORATION [None]
